FAERS Safety Report 9281907 (Version 3)
Quarter: 2013Q2

REPORT INFORMATION
  Report Type: Spontaneous
  Country: US (occurrence: US)
  Receive Date: 20130510
  Receipt Date: 20130619
  Transmission Date: 20140414
  Serious: Yes (Hospitalization)
  Sender: FDA-Public Use
  Company Number: US-BIOGENIDEC-2013BI041209

PATIENT
  Age: 31 Year
  Sex: Female

DRUGS (1)
  1. TYSABRI [Suspect]
     Indication: MULTIPLE SCLEROSIS
     Route: 042
     Dates: start: 20130225, end: 20130325

REACTIONS (6)
  - Hysterectomy [Recovered/Resolved]
  - Multiple sclerosis [Unknown]
  - Drug eruption [Unknown]
  - Tongue blistering [Recovered/Resolved]
  - Swollen tongue [Recovered/Resolved]
  - Abdominal distension [Not Recovered/Not Resolved]
